FAERS Safety Report 23993433 (Version 1)
Quarter: 2024Q2

REPORT INFORMATION
  Report Type: Spontaneous
  Country: US (occurrence: US)
  Receive Date: 20240620
  Receipt Date: 20240620
  Transmission Date: 20240716
  Serious: No
  Sender: FDA-Public Use
  Company Number: US-JNJFOC-20240575453

PATIENT
  Age: 41 Year

DRUGS (24)
  1. ZYRTEC [Suspect]
     Active Substance: CETIRIZINE HYDROCHLORIDE
     Indication: Erythema
     Route: 065
     Dates: start: 202405
  2. ZYRTEC [Suspect]
     Active Substance: CETIRIZINE HYDROCHLORIDE
     Indication: Swelling face
  3. ZYRTEC [Suspect]
     Active Substance: CETIRIZINE HYDROCHLORIDE
     Indication: Urticaria
  4. ZYRTEC [Suspect]
     Active Substance: CETIRIZINE HYDROCHLORIDE
     Indication: Eye swelling
  5. ZYRTEC [Suspect]
     Active Substance: CETIRIZINE HYDROCHLORIDE
     Indication: Pruritus
  6. ZYRTEC [Suspect]
     Active Substance: CETIRIZINE HYDROCHLORIDE
     Indication: Feeling hot
  7. FLUTICASONE [Concomitant]
     Active Substance: FLUTICASONE
     Indication: Erythema
     Route: 061
     Dates: start: 202405
  8. FLUTICASONE [Concomitant]
     Active Substance: FLUTICASONE
     Indication: Swelling face
  9. FLUTICASONE [Concomitant]
     Active Substance: FLUTICASONE
     Indication: Urticaria
  10. FLUTICASONE [Concomitant]
     Active Substance: FLUTICASONE
     Indication: Eye swelling
  11. FLUTICASONE [Concomitant]
     Active Substance: FLUTICASONE
     Indication: Pruritus
  12. FLUTICASONE [Concomitant]
     Active Substance: FLUTICASONE
     Indication: Feeling hot
  13. PREDNISONE [Concomitant]
     Active Substance: PREDNISONE
     Indication: Erythema
     Route: 065
     Dates: start: 202405
  14. PREDNISONE [Concomitant]
     Active Substance: PREDNISONE
     Indication: Swelling face
  15. PREDNISONE [Concomitant]
     Active Substance: PREDNISONE
     Indication: Urticaria
  16. PREDNISONE [Concomitant]
     Active Substance: PREDNISONE
     Indication: Eye swelling
  17. PREDNISONE [Concomitant]
     Active Substance: PREDNISONE
     Indication: Pruritus
  18. PREDNISONE [Concomitant]
     Active Substance: PREDNISONE
     Indication: Feeling hot
  19. AUGMENTIN [Concomitant]
     Active Substance: AMOXICILLIN\CLAVULANATE POTASSIUM
     Indication: Erythema
     Route: 065
     Dates: start: 202405
  20. AUGMENTIN [Concomitant]
     Active Substance: AMOXICILLIN\CLAVULANATE POTASSIUM
     Indication: Swelling face
  21. AUGMENTIN [Concomitant]
     Active Substance: AMOXICILLIN\CLAVULANATE POTASSIUM
     Indication: Urticaria
  22. AUGMENTIN [Concomitant]
     Active Substance: AMOXICILLIN\CLAVULANATE POTASSIUM
     Indication: Eye swelling
  23. AUGMENTIN [Concomitant]
     Active Substance: AMOXICILLIN\CLAVULANATE POTASSIUM
     Indication: Pruritus
  24. AUGMENTIN [Concomitant]
     Active Substance: AMOXICILLIN\CLAVULANATE POTASSIUM
     Indication: Feeling hot

REACTIONS (1)
  - Off label use [Unknown]

NARRATIVE: CASE EVENT DATE: 20240501
